FAERS Safety Report 18217876 (Version 1)
Quarter: 2020Q3

REPORT INFORMATION
  Report Type: Spontaneous
  Country: DE (occurrence: DE)
  Receive Date: 20200901
  Receipt Date: 20200901
  Transmission Date: 20201103
  Serious: Yes (Other)
  Sender: FDA-Public Use
  Company Number: NVSC2020DE238575

PATIENT
  Sex: Male

DRUGS (4)
  1. LISIHEXAL [Suspect]
     Active Substance: LISINOPRIL
     Indication: CARDIAC FAILURE
     Dosage: 2.5 MG, QD (FOR 10 DAYS)
     Route: 065
     Dates: start: 2020, end: 2020
  2. PRAMIPEXOL RATIOPHARM [Concomitant]
     Indication: PRODUCT USED FOR UNKNOWN INDICATION
     Dosage: FOR 4 WEEKS
     Route: 065
     Dates: start: 2020
  3. LISIHEXAL [Suspect]
     Active Substance: LISINOPRIL
     Dosage: 2.5 MG, QD
     Route: 065
     Dates: start: 20200825
  4. ASS?RATIOPHARM [Concomitant]
     Active Substance: ASPIRIN
     Indication: CARDIAC DISORDER
     Dosage: FOR YEARS
     Route: 065

REACTIONS (2)
  - Muscle twitching [Unknown]
  - Parkinson^s disease [Unknown]

NARRATIVE: CASE EVENT DATE: 2020
